FAERS Safety Report 8623540-8 (Version None)
Quarter: 2012Q3

REPORT INFORMATION
  Report Type: 
  Country: None (occurrence: None)
  Receive Date: 20120827
  Receipt Date: 20120824
  Transmission Date: 20120928
  Serious: Yes (Other)
  Sender: FDA-Public Use
  Company Number: US-PFIZER INC-2012208750

PATIENT
  Age: 76 Year
  Sex: Female
  Weight: 58.957 kg

DRUGS (9)
  1. LIPITOR [Suspect]
     Indication: BLOOD CHOLESTEROL INCREASED
     Dosage: 10 MG, 1X/DAY
     Route: 048
  2. METFORMIN [Concomitant]
     Dosage: 500 MG, 2X/DAY
  3. LOSARTAN [Concomitant]
     Dosage: UNK
  4. OMEPRAZOLE [Concomitant]
     Indication: GASTRIC DISORDER
     Dosage: 20 MG, 1X/DAY
  5. HYDROCHLOROTHIAZIDE [Concomitant]
     Dosage: 25 MG, 1X/DAY
  6. ASPIRIN [Concomitant]
     Dosage: 81 MG, UNK
  7. METOPROLOL [Concomitant]
     Dosage: 50 MG, UNK
  8. CALCIUM 600 WITH VITAMIN D3 [Concomitant]
     Dosage: UNK
  9. MULTI-VITAMINS [Concomitant]
     Dosage: UNK

REACTIONS (2)
  - DIABETES MELLITUS [None]
  - HYPERTENSION [None]
